FAERS Safety Report 8031039-5 (Version None)
Quarter: 2011Q4

REPORT INFORMATION
  Report Type: 
  Country: None (occurrence: None)
  Receive Date: 20111202
  Receipt Date: 20111018
  Transmission Date: 20120403
  Serious: Yes (Other)
  Sender: FDA-Public Use
  Company Number: 2009SP017659

PATIENT
  Age: 25 Year
  Sex: Female
  Weight: 63.5036 kg

DRUGS (1)
  1. NUVARING [Suspect]
     Indication: CONTRACEPTION
     Dosage: 1 DF; QM; VAG
     Dates: start: 20050601, end: 20061001

REACTIONS (5)
  - OVARIAN CYST [None]
  - POLYP [None]
  - MIGRAINE [None]
  - THROMBOSIS [None]
  - PAIN IN EXTREMITY [None]
